FAERS Safety Report 8373805-2 (Version None)
Quarter: 2012Q2

REPORT INFORMATION
  Report Type: 
  Country: None (occurrence: None)
  Receive Date: 20120521
  Receipt Date: 20120517
  Transmission Date: 20120825
  Serious: Yes (Other)
  Sender: FDA-Public Use
  Company Number: AU-ROCHE-1070066

PATIENT
  Sex: Female

DRUGS (1)
  1. HERCEPTIN [Suspect]
     Indication: BREAST CANCER

REACTIONS (4)
  - PAIN IN EXTREMITY [None]
  - DISEASE PROGRESSION [None]
  - ARTHRALGIA [None]
  - METASTATIC NEOPLASM [None]
